FAERS Safety Report 23505147 (Version 1)
Quarter: 2024Q1

REPORT INFORMATION
  Report Type: Spontaneous
  Country: CA (occurrence: CA)
  Receive Date: 20240209
  Receipt Date: 20240209
  Transmission Date: 20240410
  Serious: Yes (Hospitalization)
  Sender: FDA-Public Use
  Company Number: CA-FreseniusKabi-FK202402048

PATIENT
  Age: 25 Year
  Sex: Female

DRUGS (2)
  1. HALOPERIDOL [Suspect]
     Active Substance: HALOPERIDOL
     Indication: Psychotic disorder
     Dosage: DOSAGE FORM- NOT SPECIFIED
     Route: 065
  2. PALIPERIDONE PALMITATE [Suspect]
     Active Substance: PALIPERIDONE PALMITATE
     Indication: Psychotic disorder
     Route: 030

REACTIONS (2)
  - Hospitalisation [Unknown]
  - Wrong product administered [Unknown]
